FAERS Safety Report 5044796-7 (Version None)
Quarter: 2006Q2

REPORT INFORMATION
  Report Type: 
  Country: None (occurrence: None)
  Receive Date: 20060601
  Receipt Date: 20060228
  Transmission Date: 20061013
  Serious: No
  Sender: FDA-Public Use
  Company Number: 2006-BP-02326BP

PATIENT
  Sex: Female

DRUGS (5)
  1. SPIRIVA [Suspect]
     Indication: CHRONIC OBSTRUCTIVE PULMONARY DISEASE
     Dosage: 18 MCG (18 MCG 1 QD) IH
     Route: 055
     Dates: start: 20060214
  2. GABAPENTIN [Concomitant]
  3. KLONOPIN [Concomitant]
  4. LEXAPRO (ESCITALOPRAM OCALATE) [Concomitant]
  5. LAMICTAL [Concomitant]

REACTIONS (1)
  - DYSPNOEA [None]
